FAERS Safety Report 25790129 (Version 1)
Quarter: 2025Q3

REPORT INFORMATION
  Report Type: Spontaneous
  Country: US (occurrence: US)
  Receive Date: 20250911
  Receipt Date: 20250911
  Transmission Date: 20251021
  Serious: Yes (Other)
  Sender: BECTON DICKINSON
  Company Number: US-BECTON DICKINSON-US-BD-24-000670

PATIENT
  Age: 51 Year
  Sex: Female

DRUGS (2)
  1. CHLORAPREP [Suspect]
     Active Substance: CHLORHEXIDINE GLUCONATE\ISOPROPYL ALCOHOL
     Indication: Infection prophylaxis
     Route: 061
     Dates: start: 20241021, end: 20241021
  2. DERMABOND [Suspect]
     Active Substance: DEVICE
     Indication: Product used for unknown indication
     Route: 065
     Dates: start: 20241021, end: 20241021

REACTIONS (2)
  - Rash erythematous [Recovered/Resolved]
  - Rash pruritic [Recovered/Resolved]

NARRATIVE: CASE EVENT DATE: 20241028
